FAERS Safety Report 10514201 (Version 1)
Quarter: 2014Q4

REPORT INFORMATION
  Report Type: Spontaneous
  Country: GB (occurrence: GB)
  Receive Date: 20141013
  Receipt Date: 20141013
  Transmission Date: 20150528
  Serious: Yes (Disabling)
  Sender: FDA-Public Use
  Company Number: GB-TEVA-514378ISR

PATIENT
  Age: 72 Year
  Sex: Female
  Weight: 60 kg

DRUGS (3)
  1. SIMVASTATIN. [Suspect]
     Active Substance: SIMVASTATIN
     Indication: BLOOD CHOLESTEROL INCREASED
     Route: 048
     Dates: start: 20120728, end: 20140716
  2. IBUPROFEN. [Concomitant]
     Active Substance: IBUPROFEN
  3. COD LIVER OIL [Concomitant]
     Active Substance: COD LIVER OIL

REACTIONS (3)
  - Fibrosis [Not Recovered/Not Resolved]
  - Alveolitis allergic [Not Recovered/Not Resolved]
  - Dyspnoea [Not Recovered/Not Resolved]

NARRATIVE: CASE EVENT DATE: 201208
